FAERS Safety Report 9720653 (Version 1)
Quarter: 2013Q4

REPORT INFORMATION
  Report Type: Spontaneous
  Country: US (occurrence: US)
  Receive Date: 20131129
  Receipt Date: 20131129
  Transmission Date: 20140711
  Serious: Yes (Other)
  Sender: FDA-Public Use
  Company Number: PHEH2013US024766

PATIENT
  Sex: Female

DRUGS (5)
  1. DIOVAN [Suspect]
     Indication: BLOOD PRESSURE
  2. FEMARA [Concomitant]
     Dosage: UNK UKN, UNK
  3. LEXAPRO [Concomitant]
  4. ALPRAZOLAM [Concomitant]
  5. HYDROCHLOROTHIAZIDE [Concomitant]

REACTIONS (4)
  - Memory impairment [Unknown]
  - Pleurisy [Unknown]
  - Pneumonia [Unknown]
  - Hypertension [Unknown]
